FAERS Safety Report 4384310-2 (Version None)
Quarter: 2004Q2

REPORT INFORMATION
  Report Type: 
  Country: None (occurrence: None)
  Receive Date: 20040618
  Receipt Date: 20040301
  Transmission Date: 20050107
  Serious: Yes (Hospitalization)
  Sender: FDA-Public Use
  Company Number: 04P-163-0248796-00

PATIENT
  Age: 70 Year
  Sex: Female
  Weight: 79.3795 kg

DRUGS (7)
  1. HUMIRA [Suspect]
     Indication: RHEUMATOID ARTHRITIS
     Dosage: 40 MG, 1 IN 2 WK, SUBCUTANEOUS
     Route: 058
     Dates: start: 20030601, end: 20031201
  2. HUMIRA [Suspect]
     Indication: RHEUMATOID ARTHRITIS
     Dosage: 40 MG, 1 IN 2 WK, SUBCUTANEOUS
     Route: 058
     Dates: start: 20040223
  3. METHOTREXATE [Concomitant]
  4. PREDNISONE [Concomitant]
  5. FOLIC ACID [Concomitant]
  6. DICLOFENAC SODIUM [Concomitant]
  7. LEVOTHYROXINE SODIUM [Concomitant]

REACTIONS (11)
  - ANAEMIA [None]
  - BACK PAIN [None]
  - CHEST PAIN [None]
  - CYSTITIS [None]
  - DYSPEPSIA [None]
  - FLUID RETENTION [None]
  - GASTROENTERITIS ROTAVIRUS [None]
  - HEART RATE IRREGULAR [None]
  - NECK PAIN [None]
  - OEDEMA PERIPHERAL [None]
  - VIRUS SEROLOGY TEST POSITIVE [None]
